FAERS Safety Report 12548073 (Version 1)
Quarter: 2016Q3

REPORT INFORMATION
  Report Type: Report from Study
  Country: BR (occurrence: BR)
  Receive Date: 20160712
  Receipt Date: 20160712
  Transmission Date: 20161109
  Serious: Yes (Other)
  Sender: FDA-Public Use
  Company Number: PHHY2016BR092307

PATIENT
  Sex: Female
  Weight: 108 kg

DRUGS (4)
  1. DIOVAN HCT [Suspect]
     Active Substance: HYDROCHLOROTHIAZIDE\VALSARTAN
     Dosage: 2.5 DF (HYDROCHLOROTHIAZIDE 12.5 MG, VALSARTAN 320 MG), UNK
     Route: 048
  2. ASA [Concomitant]
     Active Substance: ASPIRIN
     Indication: CEREBROVASCULAR ACCIDENT
     Dosage: UNK
     Route: 065
  3. DIOVAN HCT [Suspect]
     Active Substance: HYDROCHLOROTHIAZIDE\VALSARTAN
     Indication: HYPERTENSION
     Dosage: (HYDROCHLOROTHIAZIDE 12.5 MG, VALSARTAN 320 MG)
     Route: 048
  4. ASA [Concomitant]
     Active Substance: ASPIRIN
     Indication: HYPERTENSION

REACTIONS (7)
  - Diabetes mellitus [Unknown]
  - Blood pressure increased [Recovered/Resolved]
  - Incorrect dose administered [Unknown]
  - Blood pressure inadequately controlled [Recovered/Resolved]
  - Nervousness [Unknown]
  - Malaise [Unknown]
  - Wrong technique in product usage process [Unknown]
